FAERS Safety Report 7587156-7 (Version None)
Quarter: 2011Q3

REPORT INFORMATION
  Report Type: 
  Country: None (occurrence: None)
  Receive Date: 20110701
  Receipt Date: 20110622
  Transmission Date: 20111222
  Serious: Yes (Other)
  Sender: FDA-Public Use
  Company Number: US-ASTRAZENECA-2011SE36635

PATIENT
  Age: 65 Year
  Sex: Female

DRUGS (3)
  1. MIRALAX [Concomitant]
  2. PRILOSEC [Suspect]
     Route: 048
  3. NEXIUM [Suspect]
     Route: 048

REACTIONS (12)
  - INCORRECT DOSE ADMINISTERED [None]
  - DRUG DOSE OMISSION [None]
  - POLYP [None]
  - GASTRITIS [None]
  - DRUG INEFFECTIVE [None]
  - MALAISE [None]
  - SPINAL OPERATION [None]
  - PNEUMONIA [None]
  - DIARRHOEA [None]
  - INTESTINAL OBSTRUCTION [None]
  - REGURGITATION [None]
  - OESOPHAGEAL SPASM [None]
